FAERS Safety Report 7538026-1 (Version None)
Quarter: 2011Q2

REPORT INFORMATION
  Report Type: 
  Country: None (occurrence: None)
  Receive Date: 20110609
  Receipt Date: 20110601
  Transmission Date: 20111010
  Serious: Yes (Hospitalization, Other)
  Sender: FDA-Public Use
  Company Number: JP-CEPHALON-2011002876

PATIENT
  Sex: Male
  Weight: 58 kg

DRUGS (7)
  1. GRANISETRON HCL [Concomitant]
  2. BENDAMUSTINE HCL [Suspect]
     Indication: B-CELL LYMPHOMA
     Route: 042
     Dates: start: 20110127, end: 20110128
  3. BENZBROMARONE [Concomitant]
     Dates: start: 20110114
  4. BENDAMUSTINE HCL [Suspect]
     Route: 042
     Dates: start: 20110406, end: 20110407
  5. ATORVASTATIN [Concomitant]
  6. BENDAMUSTINE HCL [Suspect]
     Route: 042
     Dates: start: 20110309, end: 20110310
  7. SULFAMETHOXAZOLE AND TRIMETHOPRIM [Concomitant]
     Dates: start: 20110128, end: 20110129

REACTIONS (5)
  - HEPATITIS B [None]
  - SEPSIS [None]
  - PLATELET COUNT DECREASED [None]
  - NAUSEA [None]
  - WHITE BLOOD CELL COUNT DECREASED [None]
